FAERS Safety Report 7368677-9 (Version None)
Quarter: 2011Q1

REPORT INFORMATION
  Report Type: 
  Country: None (occurrence: None)
  Receive Date: 20110323
  Receipt Date: 20110318
  Transmission Date: 20110831
  Serious: Yes (Other)
  Sender: FDA-Public Use
  Company Number: US-BAYER-2011-025029

PATIENT
  Sex: Female

DRUGS (3)
  1. YAZ [Suspect]
     Dosage: UNK
     Dates: start: 20080101, end: 20090223
  2. YASMIN [Suspect]
     Dosage: UNK
     Dates: start: 20080101, end: 20090223
  3. OCELLA [Suspect]
     Dosage: UNK
     Dates: start: 20080101, end: 20090223

REACTIONS (4)
  - EMOTIONAL DISTRESS [None]
  - INJURY [None]
  - THROMBOSIS [None]
  - PAIN [None]
